FAERS Safety Report 5319701-6 (Version None)
Quarter: 2007Q2

REPORT INFORMATION
  Report Type: 
  Country: None (occurrence: None)
  Receive Date: 20070503
  Receipt Date: 20070423
  Transmission Date: 20071010
  Serious: Yes (Hospitalization)
  Sender: FDA-Public Use
  Company Number: 2007-01168

PATIENT
  Age: 62 Year
  Sex: Male
  Weight: 72 kg

DRUGS (2)
  1. VELCADE [Suspect]
     Indication: NON-HODGKIN'S LYMPHOMA
     Dosage: INTRAVENOUS
     Route: 042
     Dates: start: 20070105, end: 20070202
  2. DEXAMETHASONE TAB [Suspect]
     Indication: NON-HODGKIN'S LYMPHOMA
     Dosage: INTRAVENOUS
     Route: 042
     Dates: start: 20070105, end: 20070202

REACTIONS (10)
  - ACUTE FEBRILE NEUTROPHILIC DERMATOSIS [None]
  - APHTHOUS STOMATITIS [None]
  - DRUG ERUPTION [None]
  - HAEMATOCRIT DECREASED [None]
  - HAEMOGLOBIN S DECREASED [None]
  - MOUTH ULCERATION [None]
  - PHARYNGEAL ULCERATION [None]
  - RASH PUSTULAR [None]
  - RED BLOOD CELL COUNT DECREASED [None]
  - VIRAL RASH [None]
